FAERS Safety Report 4513898-3 (Version None)
Quarter: 2004Q4

REPORT INFORMATION
  Report Type: 
  Country: None (occurrence: None)
  Receive Date: 20041130
  Receipt Date: 20040923
  Transmission Date: 20050328
  Serious: No
  Sender: FDA-Public Use
  Company Number: US-GLAXOSMITHKLINE-A0527093A

PATIENT
  Age: 51 Year
  Sex: Male

DRUGS (3)
  1. WELLBUTRIN XL [Suspect]
     Indication: DEPRESSION
     Dosage: 300MG PER DAY
     Route: 048
  2. TRILEPTAL [Concomitant]
  3. LORAZEPAM [Concomitant]

REACTIONS (3)
  - AGITATION [None]
  - CONSTIPATION [None]
  - DRUG INEFFECTIVE [None]
